FAERS Safety Report 9741551 (Version 1)
Quarter: 2013Q4

REPORT INFORMATION
  Report Type: Spontaneous
  Country: FR (occurrence: FR)
  Receive Date: 20131210
  Receipt Date: 20131210
  Transmission Date: 20140711
  Serious: Yes (Hospitalization)
  Sender: FDA-Public Use
  Company Number: PHHY2013FR142213

PATIENT
  Age: 74 Year
  Sex: Female

DRUGS (9)
  1. ECONAZOLE SANDOZ [Suspect]
     Route: 065
     Dates: end: 20120425
  2. MINISINTROM [Suspect]
     Indication: ARRHYTHMIA
     Route: 065
     Dates: start: 20120403, end: 20120425
  3. INEXIUM [Suspect]
     Route: 065
     Dates: start: 20120402, end: 20120425
  4. CIPROFLOXACINE MYLAN [Suspect]
     Dosage: 1 DF, BID
     Dates: start: 20120402, end: 20120425
  5. AUGMENTIN [Suspect]
     Indication: LUNG DISORDER
     Route: 065
     Dates: start: 20120326, end: 20120401
  6. CLAMOXYL [Suspect]
     Route: 065
     Dates: start: 20120402, end: 20120422
  7. AMIKLIN [Suspect]
     Indication: STAPHYLOCOCCAL MEDIASTINITIS
     Route: 065
     Dates: start: 20120329
  8. AMIKLIN [Suspect]
     Indication: PYREXIA
  9. TAZOCILLINE [Suspect]
     Indication: STAPHYLOCOCCAL MEDIASTINITIS
     Dates: start: 20120329, end: 20130402

REACTIONS (2)
  - Acute generalised exanthematous pustulosis [Recovered/Resolved]
  - Rash [Recovered/Resolved]
